FAERS Safety Report 24682261 (Version 1)
Quarter: 2024Q4

REPORT INFORMATION
  Report Type: Spontaneous
  Country: AU (occurrence: AU)
  Receive Date: 20241130
  Receipt Date: 20241130
  Transmission Date: 20250115
  Serious: Yes (Other)
  Sender: ACCORD
  Company Number: AU-Accord-457280

PATIENT
  Age: 90 Year
  Sex: Female

DRUGS (7)
  1. FUROSEMIDE [Suspect]
     Active Substance: FUROSEMIDE
     Indication: Hypervolaemia
     Dosage: BID
  2. SOLIFENACIN SUCCINATE [Suspect]
     Active Substance: SOLIFENACIN SUCCINATE
     Indication: Urinary incontinence
  3. OXYCODONE HYDROCHLORIDE [Suspect]
     Active Substance: OXYCODONE HYDROCHLORIDE
     Indication: Sleep disorder
  4. FOSINOPRIL [Suspect]
     Active Substance: FOSINOPRIL
     Indication: Product used for unknown indication
  5. MAGNESIUM HYDROXIDE [Suspect]
     Active Substance: MAGNESIUM HYDROXIDE
     Indication: Product used for unknown indication
  6. IBUPROFEN [Suspect]
     Active Substance: IBUPROFEN
     Indication: Arthralgia
  7. OMEPRAZOLE [Suspect]
     Active Substance: OMEPRAZOLE
     Indication: Product used for unknown indication

REACTIONS (14)
  - Acute kidney injury [Unknown]
  - Malaise [Unknown]
  - Condition aggravated [Unknown]
  - Anal incontinence [Unknown]
  - Ulcer [Unknown]
  - Fatigue [Unknown]
  - Confusional state [Unknown]
  - Decreased appetite [Unknown]
  - Urine output decreased [Unknown]
  - Diarrhoea [Unknown]
  - Blood creatinine increased [Unknown]
  - Product administration interrupted [Unknown]
  - Oedema [Unknown]
  - Anaemia [Unknown]
